FAERS Safety Report 18499275 (Version 1)
Quarter: 2020Q4

REPORT INFORMATION
  Report Type: Spontaneous
  Country: FR (occurrence: FR)
  Receive Date: 20201112
  Receipt Date: 20201112
  Transmission Date: 20210114
  Serious: Yes (Other)
  Sender: FDA-Public Use
  Company Number: FR-TAKEDA-2020TUS049085

PATIENT
  Sex: Male
  Weight: 70 kg

DRUGS (4)
  1. ENTYVIO [Suspect]
     Active Substance: VEDOLIZUMAB
     Indication: CROHN^S DISEASE
     Dosage: 300 MILLIGRAM
     Route: 042
     Dates: start: 20190705
  2. LEVOTHYROX [Concomitant]
     Active Substance: LEVOTHYROXINE
     Indication: HYPOTHYROIDISM
     Dosage: 87.5 MICROGRAM, QD
     Route: 048
     Dates: start: 2014
  3. UVEDOSE [Suspect]
     Active Substance: CHOLECALCIFEROL
     Indication: OSTEOPENIA
     Dosage: 1 DOSAGE FORM, 2/MONTH
     Route: 048
     Dates: start: 201904
  4. DELURSAN [Suspect]
     Active Substance: URSODIOL
     Indication: CHOLESTASIS
     Dosage: 1000 MILLIGRAM, QD
     Route: 048
     Dates: start: 20190405

REACTIONS (2)
  - Condition aggravated [Not Recovered/Not Resolved]
  - Autoimmune thyroiditis [Not Recovered/Not Resolved]

NARRATIVE: CASE EVENT DATE: 20190913
